FAERS Safety Report 6895733-1 (Version None)
Quarter: 2010Q3

REPORT INFORMATION
  Report Type: 
  Country: None (occurrence: None)
  Receive Date: 20100802
  Receipt Date: 20100727
  Transmission Date: 20110219
  Serious: Yes (Hospitalization, Other)
  Sender: FDA-Public Use
  Company Number: BR-SANOFI-AVENTIS-2010SA044613

PATIENT
  Sex: Female
  Weight: 70 kg

DRUGS (4)
  1. LANTUS [Suspect]
     Route: 058
     Dates: end: 20100727
  2. OPTIPEN [Suspect]
     Dates: end: 20100727
  3. GLUCOFORMIN [Concomitant]
     Route: 048
  4. ATENOLOL [Concomitant]
     Indication: HYPERTENSION
     Route: 048

REACTIONS (1)
  - ISCHAEMIC STROKE [None]
